APPROVED DRUG PRODUCT: AVALIDE
Active Ingredient: HYDROCHLOROTHIAZIDE; IRBESARTAN
Strength: 12.5MG;75MG **Federal Register determination that product was not discontinued or withdrawn for safety or effectiveness reasons**
Dosage Form/Route: TABLET;ORAL
Application: N020758 | Product #001
Applicant: SANOFI AVENTIS US LLC
Approved: Sep 30, 1997 | RLD: Yes | RS: No | Type: DISCN